FAERS Safety Report 14650041 (Version 4)
Quarter: 2019Q1

REPORT INFORMATION
  Report Type: Spontaneous
  Country: IT (occurrence: IT)
  Receive Date: 20180316
  Receipt Date: 20190305
  Transmission Date: 20190417
  Serious: Yes (Death, Hospitalization)
  Sender: FDA-Public Use
  Company Number: IT-NAPPMUNDI-GBR-2018-0052804

PATIENT
  Age: 78 Year
  Sex: Male
  Weight: 70 kg

DRUGS (42)
  1. ENANTONE LP [Concomitant]
     Active Substance: LEUPROLIDE ACETATE
     Indication: PROSTATE CANCER
     Dosage: 11.25 MG, Q3M
     Route: 030
     Dates: start: 201211
  2. SOLDESAM [Concomitant]
     Active Substance: DEXAMETHASONE
     Indication: PAIN IN EXTREMITY
     Dosage: 64 DROP, DAILY (64 GTT, 1X/DAY)
     Route: 048
     Dates: start: 20170802
  3. CALCIUM SANDOZ                     /00177201/ [Concomitant]
     Active Substance: CALCIUM
     Indication: HYPOCALCAEMIA
     Dosage: 0.5 DF, DAILY
     Route: 048
     Dates: start: 20170823, end: 20170919
  4. FENTANYL CITRATE. [Concomitant]
     Active Substance: FENTANYL CITRATE
     Dosage: 133 MCG, PRN (133 UG, AS NEEDED)
     Route: 048
     Dates: start: 201709
  5. FENTANYL CITRATE. [Concomitant]
     Active Substance: FENTANYL CITRATE
     Dosage: 133 MCG, PRN (133 UG, AS NEEDED)
     Route: 048
     Dates: start: 201709
  6. FENTANYL. [Suspect]
     Active Substance: FENTANYL
     Dosage: 50 MCG/HRS EVERY 3 DAYS
     Route: 062
     Dates: start: 20170726
  7. FENTANYL CITRATE. [Concomitant]
     Active Substance: FENTANYL CITRATE
     Dosage: 133 MCG, PRN (133 UG, AS NEEDED)
     Route: 048
     Dates: start: 201709
  8. FENTANYL CITRATE. [Concomitant]
     Active Substance: FENTANYL CITRATE
     Dosage: 133 MCG, PRN (133 UG, AS NEEDED)
     Route: 048
     Dates: start: 201709
  9. ORAMORPH [Concomitant]
     Active Substance: MORPHINE SULFATE
     Indication: ARTHRALGIA
     Dosage: 12 DROP, PRN (12 GTT, AS NEEDED)
     Route: 048
     Dates: start: 20170726
  10. MATRIFEN [Suspect]
     Active Substance: FENTANYL
     Indication: PAIN IN EXTREMITY
     Dosage: 50 MCG, Q1H (EVERY 3 DAYS)
     Route: 062
     Dates: start: 20170726
  11. FENTANYL. [Suspect]
     Active Substance: FENTANYL
     Dosage: 50 MCG/HRS EVERY 3 DAYS
     Route: 062
     Dates: start: 20170726
  12. FENTANYL. [Suspect]
     Active Substance: FENTANYL
     Dosage: 50 MCG/HRS EVERY 3 DAYS
     Route: 062
     Dates: start: 20170726
  13. CALCIUM SANDOZ                     /00177201/ [Concomitant]
     Active Substance: CALCIUM
     Dosage: 0.5 DF, DAILY
     Route: 048
     Dates: start: 20170823, end: 20170919
  14. CALCIUM SANDOZ                     /00177201/ [Concomitant]
     Active Substance: CALCIUM
     Dosage: 0.5 DF, DAILY
     Route: 048
     Dates: start: 20170823, end: 20170919
  15. DELTACORTENE [Concomitant]
     Active Substance: PREDNISONE
     Indication: PAIN IN EXTREMITY
  16. FENTANYL. [Suspect]
     Active Substance: FENTANYL
     Indication: PAIN IN EXTREMITY
     Dosage: 50 MCG/HRS EVERY 3 DAYS
     Route: 062
     Dates: start: 20170726
  17. FENTANYL. [Suspect]
     Active Substance: FENTANYL
     Dosage: 50 MCG/HRS EVERY 3 DAYS
     Route: 062
     Dates: start: 20170726
  18. ENANTONE LP [Concomitant]
     Active Substance: LEUPROLIDE ACETATE
     Dosage: 11.25 MG, Q3M
     Route: 030
     Dates: start: 201211
  19. ENANTONE LP [Concomitant]
     Active Substance: LEUPROLIDE ACETATE
     Dosage: 11.25 MG, Q3M
     Route: 030
     Dates: start: 201211
  20. LYRICA [Concomitant]
     Active Substance: PREGABALIN
     Indication: PAIN IN EXTREMITY
     Dosage: 150 MG, DAILY (75 MG, 2X/DAY)
     Route: 048
     Dates: start: 201704
  21. FENTANYL CITRATE. [Concomitant]
     Active Substance: FENTANYL CITRATE
     Dosage: 133 MCG, PRN (133 UG, AS NEEDED)
     Route: 048
     Dates: start: 201709
  22. FENTANYL CITRATE. [Concomitant]
     Active Substance: FENTANYL CITRATE
     Dosage: 133 MCG, PRN (133 UG, AS NEEDED)
     Route: 048
     Dates: start: 201709
  23. FENTANYL. [Suspect]
     Active Substance: FENTANYL
     Dosage: 50 MCG/HRS EVERY 3 DAYS
     Route: 062
     Dates: start: 20170726
  24. CALCIUM SANDOZ                     /00177201/ [Concomitant]
     Active Substance: CALCIUM
     Dosage: 0.5 DF, DAILY
     Route: 048
     Dates: start: 20170823, end: 20170919
  25. DEXAMETHASONE. [Concomitant]
     Active Substance: DEXAMETHASONE
     Indication: DECREASED APPETITE
     Dosage: 36 MG, UNK
     Route: 065
  26. ORAMORPH [Concomitant]
     Active Substance: MORPHINE SULFATE
     Indication: PAIN IN EXTREMITY
  27. OXYCONTIN [Suspect]
     Active Substance: OXYCODONE HYDROCHLORIDE
     Indication: ARTHRALGIA
     Dosage: UNK
     Route: 065
  28. PREDNISONE. [Suspect]
     Active Substance: PREDNISONE
     Indication: PROSTATE CANCER
     Dosage: 10 MG, DAILY (10 MG, 1X/DAY)
     Route: 048
     Dates: start: 20151020, end: 20171107
  29. FENTANYL. [Suspect]
     Active Substance: FENTANYL
     Dosage: 50 MCG/HRS EVERY 3 DAYS
     Route: 062
     Dates: start: 20170726
  30. FENTANYL. [Suspect]
     Active Substance: FENTANYL
     Dosage: 50 MCG/HRS EVERY 3 DAYS
     Route: 062
     Dates: start: 20170726
  31. FENTANYL CITRATE. [Concomitant]
     Active Substance: FENTANYL CITRATE
     Dosage: 133 MCG, PRN (133 UG, AS NEEDED)
     Route: 048
     Dates: start: 201709
  32. DELTACORTENE [Concomitant]
     Active Substance: PREDNISONE
     Indication: ARTHRALGIA
     Dosage: 12.5 MG, 1X/DAY
     Route: 048
     Dates: start: 201709
  33. OXYCONTIN [Suspect]
     Active Substance: OXYCODONE HYDROCHLORIDE
     Indication: PAIN IN EXTREMITY
     Dosage: 20 MG, DAILY (10 MG, 2X/DAY)
     Route: 048
     Dates: start: 20170803
  34. FENTANYL. [Suspect]
     Active Substance: FENTANYL
     Dosage: 50 MCG/HRS EVERY 3 DAYS
     Route: 062
     Dates: start: 20170726
  35. ZOMETA [Concomitant]
     Active Substance: ZOLEDRONIC ACID
     Indication: PROSTATE CANCER
     Dosage: 4 MG, MONTHLY
     Route: 042
     Dates: start: 20111108, end: 20170727
  36. CALCIUM SANDOZ                     /00177201/ [Concomitant]
     Active Substance: CALCIUM
     Dosage: 0.5 DF, DAILY
     Route: 048
     Dates: start: 20170823, end: 20170919
  37. DEXAMETHASONE. [Concomitant]
     Active Substance: DEXAMETHASONE
     Indication: WEIGHT DECREASED
     Dosage: 4 MG, DAILY  (4 MG, 1X/DAY)
     Route: 042
     Dates: start: 20170912, end: 20170920
  38. FENTANYL CITRATE. [Concomitant]
     Active Substance: FENTANYL CITRATE
     Indication: PAIN IN EXTREMITY
     Dosage: 133 MCG, PRN (133 UG, AS NEEDED)
     Route: 048
     Dates: start: 201709
  39. TACHIPIRINA [Concomitant]
     Active Substance: ACETAMINOPHEN
     Indication: PAIN IN EXTREMITY
     Dosage: 2000 MG, DAILY (1000 MG, 2X/DAY)
     Route: 048
     Dates: start: 201709, end: 20171003
  40. ABIRATERONE. [Suspect]
     Active Substance: ABIRATERONE ACETATE
     Indication: PROSTATE CANCER
     Dosage: 1000 MG, DAILY
     Route: 048
     Dates: start: 20151020, end: 20171107
  41. CALCIUM SANDOZ                     /00177201/ [Concomitant]
     Active Substance: CALCIUM
     Dosage: 0.5 DF, DAILY
     Route: 048
     Dates: start: 20170823, end: 20170919
  42. FENTANYL CITRATE. [Concomitant]
     Active Substance: FENTANYL CITRATE
     Dosage: 133 MCG, PRN (133 UG, AS NEEDED)
     Route: 048
     Dates: start: 201709

REACTIONS (3)
  - Decreased appetite [Fatal]
  - Neoplasm progression [Fatal]
  - Pain in extremity [Fatal]

NARRATIVE: CASE EVENT DATE: 20171007
